FAERS Safety Report 7805678-8 (Version None)
Quarter: 2011Q4

REPORT INFORMATION
  Report Type: 
  Country: None (occurrence: None)
  Receive Date: 20111011
  Receipt Date: 20110929
  Transmission Date: 20120403
  Serious: Yes (Other)
  Sender: FDA-Public Use
  Company Number: US-BIOGENIDEC-2011BI037650

PATIENT
  Sex: Female

DRUGS (1)
  1. TYSABRI [Suspect]
     Indication: MULTIPLE SCLEROSIS
     Route: 042
     Dates: start: 20100609, end: 20110321

REACTIONS (7)
  - MOBILITY DECREASED [None]
  - GENERAL SYMPTOM [None]
  - BACTERIAL INFECTION [None]
  - HYPOAESTHESIA [None]
  - MUSCLE SPASMS [None]
  - TOOTH LOSS [None]
  - NERVOUS SYSTEM DISORDER [None]
